FAERS Safety Report 24150340 (Version 1)
Quarter: 2024Q3

REPORT INFORMATION
  Report Type: Spontaneous
  Country: JP (occurrence: JP)
  Receive Date: 20240730
  Receipt Date: 20240730
  Transmission Date: 20241017
  Serious: Yes (Hospitalization)
  Sender: ABBVIE
  Company Number: JP-IRONWOOD PHARMACEUTICALS, INC.-IRWD2024000937

PATIENT
  Age: 9 Decade
  Sex: Male

DRUGS (1)
  1. LINZESS [Suspect]
     Active Substance: LINACLOTIDE
     Indication: Product used for unknown indication
     Dosage: UNK UNK, UNKNOWN FREQ. BEFORE SLEEP
     Route: 048

REACTIONS (2)
  - Atrioventricular block [Unknown]
  - Product use issue [Unknown]
